FAERS Safety Report 6823266-7 (Version None)
Quarter: 2010Q3

REPORT INFORMATION
  Report Type: 
  Country: None (occurrence: None)
  Receive Date: 20100708
  Receipt Date: 20100629
  Transmission Date: 20110219
  Serious: Yes (Life-Threatening, Other)
  Sender: FDA-Public Use
  Company Number: US-WYE-H15955910

PATIENT

DRUGS (2)
  1. PROTONIX [Suspect]
     Indication: CHEST PAIN
     Route: 042
     Dates: start: 20100601, end: 20100601
  2. PROTONIX [Suspect]
     Indication: GASTROINTESTINAL DISORDER

REACTIONS (2)
  - CARDIO-RESPIRATORY ARREST [None]
  - WRONG TECHNIQUE IN DRUG USAGE PROCESS [None]
